FAERS Safety Report 23664037 (Version 1)
Quarter: 2024Q1

REPORT INFORMATION
  Report Type: Spontaneous
  Country: US (occurrence: US)
  Receive Date: 20240322
  Receipt Date: 20240322
  Transmission Date: 20240410
  Serious: Yes (Other)
  Sender: FDA-Public Use
  Company Number: US-GSKCCFUS-Case-01962493_AE-109099

PATIENT

DRUGS (1)
  1. FLUTICASONE PROPIONATE\SALMETEROL XINAFOATE [Suspect]
     Active Substance: FLUTICASONE PROPIONATE\SALMETEROL XINAFOATE
     Indication: Product used for unknown indication
     Dosage: 250/50 MCG
     Route: 055

REACTIONS (9)
  - Lower respiratory tract infection [Unknown]
  - Foreign body in throat [Unknown]
  - Dysphonia [Unknown]
  - Bronchitis [Unknown]
  - Muscle rigidity [Unknown]
  - Asthma [Unknown]
  - Hair texture abnormal [Unknown]
  - Nasal congestion [Unknown]
  - Drug ineffective [Unknown]

NARRATIVE: CASE EVENT DATE: 20240301
